FAERS Safety Report 15990854 (Version 1)
Quarter: 2019Q1

REPORT INFORMATION
  Report Type: Spontaneous
  Country: US (occurrence: US)
  Receive Date: 20190221
  Receipt Date: 20190221
  Transmission Date: 20190418
  Serious: Yes (Disabling)
  Sender: FDA-Public Use
  Company Number: None

PATIENT
  Age: 65 Year
  Sex: Male
  Weight: 59.85 kg

DRUGS (1)
  1. XIAFLEX [Suspect]
     Active Substance: COLLAGENASE CLOSTRIDIUM HISTOLYTICUM
     Indication: PEYRONIE^S DISEASE
     Dosage: ?          QUANTITY:1 INJECTION(S);OTHER FREQUENCY:EVERY 3 DAYS;OTHER ROUTE:INJECTION INTO PENIS?
     Dates: start: 20181101

REACTIONS (2)
  - Ecchymosis [None]
  - Haematoma [None]

NARRATIVE: CASE EVENT DATE: 20190221
